FAERS Safety Report 5404809-7 (Version None)
Quarter: 2007Q3

REPORT INFORMATION
  Report Type: 
  Country: None (occurrence: None)
  Receive Date: 20070803
  Receipt Date: 20070723
  Transmission Date: 20080115
  Serious: Yes (Hospitalization)
  Sender: FDA-Public Use
  Company Number: FR-JNJFOC-20061004315

PATIENT
  Age: 31 Year
  Sex: Female

DRUGS (2)
  1. REMICADE [Suspect]
     Indication: ANKYLOSING SPONDYLITIS
     Route: 042
     Dates: start: 20060817, end: 20060831
  2. AMODEX [Suspect]
     Indication: DRUG USE FOR UNKNOWN INDICATION
     Route: 048
     Dates: start: 20060828, end: 20060831

REACTIONS (4)
  - ANKYLOSING SPONDYLITIS [None]
  - MICROCYTIC ANAEMIA [None]
  - POLYARTHRITIS [None]
  - THROMBOCYTHAEMIA [None]
